FAERS Safety Report 17159544 (Version 1)
Quarter: 2019Q4

REPORT INFORMATION
  Report Type: Spontaneous
  Country: US (occurrence: US)
  Receive Date: 20191216
  Receipt Date: 20191216
  Transmission Date: 20200122
  Serious: No
  Sender: FDA-Public Use
  Company Number: US-VERTEX PHARMACEUTICALS-2018-003486

PATIENT
  Age: 12 Year
  Sex: Female
  Weight: 36 kg

DRUGS (5)
  1. SYMDEKO [Interacting]
     Active Substance: IVACAFTOR\TEZACAFTOR
     Dosage: MORNING PILL ONLY
     Route: 048
     Dates: start: 2018, end: 2018
  2. LEXAPRO [Interacting]
     Active Substance: ESCITALOPRAM OXALATE
     Dosage: HALF DOSE
     Route: 065
     Dates: start: 2018
  3. LEXAPRO [Interacting]
     Active Substance: ESCITALOPRAM OXALATE
     Indication: PRODUCT USED FOR UNKNOWN INDICATION
     Dosage: UNK
     Route: 065
  4. SYMDEKO [Suspect]
     Active Substance: IVACAFTOR\TEZACAFTOR
     Indication: CYSTIC FIBROSIS
     Dosage: 100MG TEZACAFTOR/150MG IVACAFTOR AM; 150MG IVACAFTOR PM
     Route: 048
     Dates: start: 20180424, end: 2018
  5. SYMDEKO [Interacting]
     Active Substance: IVACAFTOR\TEZACAFTOR
     Dosage: 100MG TEZACAFTOR/150MG IVACAFTOR; 150MG IVACAFTOR  (FREQUENCY UNKNOWN)
     Route: 048
     Dates: start: 2018

REACTIONS (8)
  - Respiratory tract infection [Unknown]
  - Decreased appetite [Recovered/Resolved]
  - Fatigue [Recovered/Resolved]
  - Pneumonia [Not Recovered/Not Resolved]
  - Drug interaction [Unknown]
  - Vomiting [Recovered/Resolved]
  - Nausea [Recovered/Resolved]
  - Headache [Recovered/Resolved]

NARRATIVE: CASE EVENT DATE: 201804
